FAERS Safety Report 5756223-2 (Version None)
Quarter: 2008Q2

REPORT INFORMATION
  Report Type: 
  Country: None (occurrence: None)
  Receive Date: 20080602
  Receipt Date: 20080521
  Transmission Date: 20081010
  Serious: Yes (Death, Other)
  Sender: FDA-Public Use
  Company Number: FR-PFIZER INC-2008033789

PATIENT
  Sex: Male
  Weight: 77 kg

DRUGS (11)
  1. LYRICA [Suspect]
     Indication: POST HERPETIC NEURALGIA
     Dates: start: 20070612, end: 20070731
  2. LYRICA [Suspect]
     Indication: NEURALGIA
  3. AMLOR [Concomitant]
     Indication: HYPERTENSION
  4. LASILIX [Concomitant]
     Indication: MYOCARDIAL INFARCTION
  5. TRIATEC [Concomitant]
     Indication: CARDIAC FAILURE
  6. CARDENSIEL [Concomitant]
     Indication: CARDIAC FAILURE
  7. ASPIRIN [Concomitant]
  8. PLAVIX [Concomitant]
     Indication: ARTERIAL DISORDER
  9. ZOCOR [Concomitant]
     Indication: VASCULAR OPERATION
  10. ALLOPURINOL [Concomitant]
  11. PROSCAR [Concomitant]

REACTIONS (7)
  - CONFUSIONAL STATE [None]
  - DISORIENTATION [None]
  - EUPHORIC MOOD [None]
  - GAIT DISTURBANCE [None]
  - MYOCARDIAL INFARCTION [None]
  - RENAL FAILURE ACUTE [None]
  - TRANSIENT ISCHAEMIC ATTACK [None]
